FAERS Safety Report 6101653-2 (Version None)
Quarter: 2009Q1

REPORT INFORMATION
  Report Type: 
  Country: None (occurrence: None)
  Receive Date: 20090304
  Receipt Date: 20090224
  Transmission Date: 20090719
  Serious: Yes (Other)
  Sender: FDA-Public Use
  Company Number: B0562751A

PATIENT
  Sex: Male

DRUGS (1)
  1. NICOTINE POLACRILEX [Suspect]
     Indication: DRUG USE FOR UNKNOWN INDICATION
     Route: 002

REACTIONS (8)
  - DEPENDENCE [None]
  - INCORRECT DRUG ADMINISTRATION DURATION [None]
  - MALAISE [None]
  - MIGRAINE [None]
  - MUSCULAR WEAKNESS [None]
  - REACTION TO FOOD ADDITIVE [None]
  - THYROID DISORDER [None]
  - TREMOR [None]
